FAERS Safety Report 7941733-X (Version None)
Quarter: 2011Q4

REPORT INFORMATION
  Report Type: 
  Country: None (occurrence: None)
  Receive Date: 20111128
  Receipt Date: 20110929
  Transmission Date: 20120403
  Serious: No
  Sender: FDA-Public Use
  Company Number: US-BAYER-2011-090155

PATIENT
  Age: 54 Year
  Sex: Male
  Weight: 104 kg

DRUGS (1)
  1. ALEVE (CAPLET) [Suspect]
     Indication: ARTHRITIS
     Dosage: 3 DF, TID
     Dates: start: 20110629

REACTIONS (2)
  - NO ADVERSE EVENT [None]
  - ARTHRALGIA [None]
